FAERS Safety Report 20914797 (Version 1)
Quarter: 2022Q2

REPORT INFORMATION
  Report Type: Spontaneous
  Country: US (occurrence: US)
  Receive Date: 20220604
  Receipt Date: 20220604
  Transmission Date: 20220720
  Serious: No
  Sender: FDA-Public Use
  Company Number: US-SA-SAC20220525000252

PATIENT
  Age: 63 Year
  Sex: Male

DRUGS (5)
  1. DUPIXENT [Suspect]
     Active Substance: DUPILUMAB
     Indication: Dermatitis atopic
     Dosage: 300 MG, QOW
     Route: 058
     Dates: start: 20220510
  2. VITAMIN D3 [Concomitant]
     Active Substance: CHOLECALCIFEROL
     Dosage: 10 UG
  3. BIOTIN [Concomitant]
     Active Substance: BIOTIN
     Dosage: 10 MG
  4. ZINC [Concomitant]
     Active Substance: ZINC
     Dosage: 66 MG;ZINC-15 66 MG TABLET
  5. HERBALS\TURMERIC [Concomitant]
     Active Substance: HERBALS\TURMERIC
     Dosage: 1053 MG

REACTIONS (4)
  - Pruritus [Unknown]
  - Skin swelling [Unknown]
  - Dry skin [Unknown]
  - Sleep disorder [Unknown]
